FAERS Safety Report 6940049-8 (Version None)
Quarter: 2010Q3

REPORT INFORMATION
  Report Type: 
  Country: None (occurrence: None)
  Receive Date: 20100825
  Receipt Date: 20100813
  Transmission Date: 20110219
  Serious: Yes (Death, Congenital Anomaly, Other)
  Sender: FDA-Public Use
  Company Number: GB-RANBAXY-2010US-35965

PATIENT

DRUGS (6)
  1. ZIDOVUDINE [Suspect]
     Indication: PRODUCT USED FOR UNKNOWN INDICATION
     Dosage: UNK, UNK
     Route: 064
  2. PREZISTA [Suspect]
     Indication: PRODUCT USED FOR UNKNOWN INDICATION
     Dosage: UNK
     Route: 064
  3. PREZISTA [Suspect]
     Dosage: UNK
  4. PREZISTA [Suspect]
     Dosage: UNK
  5. RALTEGRAVIR [Suspect]
     Indication: PRODUCT USED FOR UNKNOWN INDICATION
     Dosage: UNK
     Route: 064
     Dates: start: 20090319
  6. NORVIR [Suspect]
     Indication: PRODUCT USED FOR UNKNOWN INDICATION
     Dosage: UNK,UNK
     Route: 064

REACTIONS (6)
  - AORTIC VALVE DISEASE [None]
  - CARDIAC MURMUR [None]
  - DRUG EXPOSURE DURING PREGNANCY [None]
  - PULMONARY VALVE DISEASE [None]
  - SUDDEN INFANT DEATH SYNDROME [None]
  - VENTRICULAR HYPERTROPHY [None]
